FAERS Safety Report 8616427-8 (Version None)
Quarter: 2012Q3

REPORT INFORMATION
  Report Type: 
  Country: None (occurrence: None)
  Receive Date: 20120823
  Receipt Date: 20120815
  Transmission Date: 20120928
  Serious: Yes (Other)
  Sender: FDA-Public Use
  Company Number: CHPA2012US018286

PATIENT
  Sex: Male

DRUGS (2)
  1. MYOFLEX ANALGESIC CREME [Suspect]
     Indication: SCIATICA
     Dosage: 1-2 TIMES/DAY, PRN
     Route: 061
  2. DRUG THERAPY NOS [Suspect]
     Indication: PAIN IN EXTREMITY

REACTIONS (11)
  - PAIN IN EXTREMITY [None]
  - HYPERTENSION [None]
  - ARTHRITIS [None]
  - THERAPEUTIC RESPONSE UNEXPECTED [None]
  - WRONG TECHNIQUE IN DRUG USAGE PROCESS [None]
  - OFF LABEL USE [None]
  - TRANSIENT ISCHAEMIC ATTACK [None]
  - DIABETES MELLITUS [None]
  - ARTHROPATHY [None]
  - ROTATOR CUFF SYNDROME [None]
  - MEMORY IMPAIRMENT [None]
